FAERS Safety Report 7107936-1 (Version None)
Quarter: 2010Q4

REPORT INFORMATION
  Report Type: 
  Country: None (occurrence: None)
  Receive Date: 20101117
  Receipt Date: 20101110
  Transmission Date: 20110411
  Serious: Yes (Hospitalization)
  Sender: FDA-Public Use
  Company Number: FR-BAYER-201039645GPV

PATIENT
  Age: 67 Year
  Sex: Female
  Weight: 74 kg

DRUGS (6)
  1. SORAFENIB [Suspect]
     Indication: THYROID CANCER
     Dosage: AS USED: 200-400 MG  UNIT DOSE: 200 MG
     Route: 048
     Dates: start: 20100818, end: 20100913
  2. LEVOTHYROXINE SODIUM [Concomitant]
     Indication: THYROIDECTOMY
     Route: 048
     Dates: start: 19891201
  3. NEXIUM [Concomitant]
     Indication: DYSPEPSIA
     Route: 048
     Dates: start: 20100720
  4. EXFORGE [Concomitant]
     Indication: HYPERTENSION
     Dosage: 10MG/160MG
     Route: 048
     Dates: start: 20100802
  5. IMODIUM [Concomitant]
  6. XANAX [Concomitant]

REACTIONS (4)
  - CEREBROVASCULAR ACCIDENT [None]
  - DYSARTHRIA [None]
  - METAMORPHOPSIA [None]
  - VISION BLURRED [None]
